FAERS Safety Report 11803307 (Version 6)
Quarter: 2016Q4

REPORT INFORMATION
  Report Type: Spontaneous
  Country: US (occurrence: US)
  Receive Date: 20151204
  Receipt Date: 20161227
  Transmission Date: 20170206
  Serious: Yes (Hospitalization, Other)
  Sender: FDA-Public Use
  Company Number: US-BAYER-2015-471779

PATIENT
  Age: 50 Year
  Sex: Male
  Weight: 90.7 kg

DRUGS (23)
  1. OMEPRAZOLE. [Concomitant]
     Active Substance: OMEPRAZOLE
     Dosage: UNK
  2. TIZANIDINE. [Concomitant]
     Active Substance: TIZANIDINE
     Dosage: UNK
  3. CORTICOSTEROIDS [Concomitant]
     Active Substance: CORTICOSTEROID NOS
     Dosage: UNK
  4. GLIBENCLAMIDE [Concomitant]
     Active Substance: GLYBURIDE
     Dosage: UNK
  5. CIPROFLOXACIN. [Concomitant]
     Active Substance: CIPROFLOXACIN
     Dosage: 500 MG, UNK
     Dates: start: 20061129
  6. AVELOX [Suspect]
     Active Substance: MOXIFLOXACIN HYDROCHLORIDE
     Indication: BRONCHITIS CHRONIC
     Dosage: UNK
     Dates: start: 20080307
  7. AVELOX [Suspect]
     Active Substance: MOXIFLOXACIN HYDROCHLORIDE
     Indication: LUNG INFECTION
     Dosage: UNK
     Dates: start: 20090522
  8. AVELOX [Suspect]
     Active Substance: MOXIFLOXACIN HYDROCHLORIDE
     Indication: BRONCHITIS CHRONIC
     Dosage: 400 MG, UNK
     Dates: start: 20130821, end: 20130821
  9. NSAID^S [Concomitant]
     Active Substance: UNSPECIFIED INGREDIENT
     Dosage: UNK
  10. AVELOX [Suspect]
     Active Substance: MOXIFLOXACIN HYDROCHLORIDE
     Indication: PNEUMONIA MYCOPLASMAL
     Dosage: UNK
     Dates: start: 20121107
  11. AVELOX [Suspect]
     Active Substance: MOXIFLOXACIN HYDROCHLORIDE
     Indication: BRONCHITIS CHRONIC
     Dosage: UNK
     Dates: start: 20140204
  12. LEVOFLOXACIN. [Suspect]
     Active Substance: LEVOFLOXACIN
     Indication: BRONCHITIS CHRONIC
     Dosage: UNK
     Route: 048
     Dates: start: 20120926
  13. THEOPHYLLINE [Concomitant]
     Active Substance: THEOPHYLLINE ANHYDROUS
     Dosage: UNK
  14. DULOXETINE. [Concomitant]
     Active Substance: DULOXETINE
     Dosage: UNK
  15. CLOZAPINE. [Concomitant]
     Active Substance: CLOZAPINE
     Dosage: UNK
  16. LEVOFLOXACIN. [Suspect]
     Active Substance: LEVOFLOXACIN
     Indication: LUNG INFECTION
     Dosage: UNK
     Dates: start: 20121212
  17. XANTHINES [Concomitant]
     Active Substance: UNSPECIFIED INGREDIENT
     Dosage: UNK
  18. METHOTREXATE. [Concomitant]
     Active Substance: METHOTREXATE
     Dosage: UNK
  19. ROPINIROLE. [Concomitant]
     Active Substance: ROPINIROLE
     Dosage: UNK
  20. FLUOROQUINOLONES [Concomitant]
     Active Substance: UNSPECIFIED INGREDIENT
     Dosage: UNK
  21. METOCLOPRAMIDE. [Concomitant]
     Active Substance: METOCLOPRAMIDE
     Dosage: UNK
  22. CYCLOSPORINE. [Concomitant]
     Active Substance: CYCLOSPORINE
     Dosage: UNK
  23. WARFARIN [Concomitant]
     Active Substance: WARFARIN
     Dosage: UNK

REACTIONS (62)
  - Injury [None]
  - Emotional distress [None]
  - Cough [None]
  - Bone pain [None]
  - Fall [None]
  - Bursa disorder [None]
  - Abdominal pain [None]
  - Traumatic arthropathy [None]
  - Pain in extremity [None]
  - Musculoskeletal disorder [None]
  - Swelling [None]
  - Inflammation [Not Recovered/Not Resolved]
  - Hyperhidrosis [Not Recovered/Not Resolved]
  - Intervertebral disc degeneration [None]
  - Coronary artery disease [None]
  - Dizziness [None]
  - Pain in extremity [None]
  - Pain in extremity [None]
  - Abscess limb [Recovering/Resolving]
  - Feeling hot [None]
  - Respiratory disorder [None]
  - Chest pain [Not Recovered/Not Resolved]
  - Skin burning sensation [None]
  - Cholelithiasis [None]
  - Back pain [None]
  - Pneumonia [None]
  - Neuropathy peripheral [None]
  - Bronchitis [None]
  - Hyperhidrosis [None]
  - Erythema [None]
  - Osteoarthritis [None]
  - Cellulitis [Recovered/Resolved]
  - Paraesthesia [None]
  - Heart rate increased [None]
  - Nausea [None]
  - Pain in extremity [None]
  - Skin tightness [None]
  - Gastrooesophageal reflux disease [None]
  - Cholecystectomy [None]
  - Pulmonary congestion [None]
  - Hypertension [None]
  - Hyperhidrosis [None]
  - Arthritis [None]
  - Inflammation [None]
  - Headache [None]
  - Spondyloarthropathy [None]
  - Muscular weakness [None]
  - Dyspnoea [None]
  - Musculoskeletal pain [None]
  - Sinus disorder [None]
  - Rotator cuff syndrome [None]
  - Pneumonia mycoplasmal [Not Recovered/Not Resolved]
  - Cholecystitis acute [None]
  - Cellulitis [None]
  - Bursitis infective staphylococcal [None]
  - Staphylococcal infection [None]
  - Anxiety [None]
  - Swelling [None]
  - Chest pain [None]
  - Arthralgia [None]
  - Chronic obstructive pulmonary disease [None]
  - Asthenia [Not Recovered/Not Resolved]

NARRATIVE: CASE EVENT DATE: 20080307
